FAERS Safety Report 9148405 (Version 3)
Quarter: 2013Q4

REPORT INFORMATION
  Report Type: Spontaneous
  Country: GB (occurrence: GB)
  Receive Date: 20130308
  Receipt Date: 20131004
  Transmission Date: 20140711
  Serious: Yes (Other)
  Sender: FDA-Public Use
  Company Number: PHHY2013GB021960

PATIENT
  Age: 78 Year
  Sex: Female

DRUGS (11)
  1. CLOPIDOGREL [Suspect]
     Indication: CEREBROVASCULAR ACCIDENT
     Dosage: 75 MG
     Route: 048
     Dates: start: 201201
  2. ZOMETA [Suspect]
     Dosage: 1 DF, BID
     Route: 042
     Dates: start: 20121207
  3. ADCAL-D3 [Concomitant]
     Indication: OSTEOPOROSIS
     Dosage: 2 DF, QD
  4. ALENDRONIC ACID [Concomitant]
     Indication: OSTEOPOROSIS
     Dosage: 70 MG
  5. ALENDRONIC ACID [Concomitant]
     Dosage: 70 MG, UNK
  6. SIMVASTATIN [Concomitant]
     Indication: HYPERCHOLESTEROLAEMIA
     Dosage: 40 MG
  7. SIMVASTATIN [Concomitant]
     Dosage: 40 MG, UNK
  8. ANASTROZOLE [Concomitant]
     Indication: BREAST CANCER
     Dosage: 7 MG
  9. ANASTROZOLE [Concomitant]
     Dosage: 7 MG, UNK
  10. FELODIPINE [Concomitant]
     Indication: HYPERTENSION
     Dosage: 25 MG
  11. FELODIPINE [Concomitant]
     Dosage: 25 MG, UNK

REACTIONS (3)
  - Contusion [Recovered/Resolved]
  - Drug interaction [Unknown]
  - Drug ineffective [Unknown]
